FAERS Safety Report 8423119 (Version 2)
Quarter: 2012Q4

REPORT INFORMATION
  Report Type: 
  Country: US (occurrence: US)
  Receive Date: 20120223
  Receipt Date: 20121014
  Transmission Date: 20130627
  Serious: Yes (Hospitalization)
  Sender: FDA-Public Use
  Company Number: US-US-EMD SERONO, INC.-7114461

PATIENT
  Age: 54 None
  Sex: Female
  Weight: 73 kg

DRUGS (9)
  1. REBIF [Suspect]
     Indication: RELAPSING-REMITTING MULTIPLE SCLEROSIS
     Route: 058
     Dates: start: 20101115
  2. NAPROXEN [Concomitant]
     Indication: PREMEDICATION
  3. ESTRADIOL [Concomitant]
     Indication: PRODUCT USED FOR UNKNOWN INDICATION
  4. MULTIVITAMIN [Concomitant]
     Indication: PRODUCT USED FOR UNKNOWN INDICATION
  5. TIZANIDINE [Concomitant]
     Indication: MUSCLE SPASTICITY
  6. AMITRIPTYLINE [Concomitant]
     Indication: DYSAESTHESIA
  7. KEPPRA [Concomitant]
     Indication: MUSCLE SPASTICITY
  8. BACLOFEN [Concomitant]
     Indication: MUSCLE SPASTICITY
  9. GABAPENTIN [Concomitant]
     Indication: DYSAESTHESIA

REACTIONS (1)
  - Localised infection [Not Recovered/Not Resolved]
